FAERS Safety Report 9555225 (Version 1)
Quarter: 2013Q3

REPORT INFORMATION
  Report Type: Spontaneous
  Country: US (occurrence: None)
  Receive Date: 20130917
  Receipt Date: 20130917
  Transmission Date: 20140515
  Serious: Yes (Other)
  Sender: FDA-Public Use
  Company Number: 093771

PATIENT
  Age: 79 Year
  Sex: 0

DRUGS (1)
  1. ROTIGOTINE [Suspect]
     Indication: PARKINSON^S DISEASE
     Dosage: TO UNKNOWN?

REACTIONS (2)
  - Blood pressure increased [None]
  - Drug administration error [None]
